FAERS Safety Report 4359116-0 (Version None)
Quarter: 2004Q2

REPORT INFORMATION
  Report Type: 
  Country: None (occurrence: None)
  Receive Date: 20040517
  Receipt Date: 20040517
  Transmission Date: 20050107
  Serious: Yes (Hospitalization)
  Sender: FDA-Public Use
  Company Number: None

PATIENT
  Age: 38 Year
  Sex: Male
  Weight: 47.2 kg

DRUGS (1)
  1. TENOFOVIR  300 MG PO Q PM (GILEAD SCIENCES) [Suspect]
     Indication: HIV INFECTION
     Dosage: 300 MG PO Q PM
     Route: 048
     Dates: start: 20030802, end: 20030902

REACTIONS (6)
  - BALANCE DISORDER [None]
  - BLOOD CREATININE INCREASED [None]
  - COGNITIVE DISORDER [None]
  - HEADACHE [None]
  - NAUSEA [None]
  - VOMITING [None]
